FAERS Safety Report 12436746 (Version 5)
Quarter: 2016Q4

REPORT INFORMATION
  Report Type: Spontaneous
  Country: CA (occurrence: CA)
  Receive Date: 20160606
  Receipt Date: 20161129
  Transmission Date: 20170207
  Serious: Yes (Hospitalization, Other)
  Sender: FDA-Public Use
  Company Number: CA-ROCHE-1767876

PATIENT
  Age: 27 Year
  Sex: Female

DRUGS (7)
  1. AERIUS (CANADA) [Concomitant]
     Indication: PRODUCT USED FOR UNKNOWN INDICATION
     Dosage: UNK
     Route: 065
  2. SYMBICORT [Concomitant]
     Active Substance: BUDESONIDE\FORMOTEROL FUMARATE DIHYDRATE
     Indication: PRODUCT USED FOR UNKNOWN INDICATION
     Route: 065
  3. XOLAIR [Suspect]
     Active Substance: OMALIZUMAB
     Route: 058
     Dates: start: 20160526
  4. XOLAIR [Suspect]
     Active Substance: OMALIZUMAB
     Indication: ASTHMA
     Dosage: 375 MG, BIW
     Route: 058
     Dates: start: 20160510
  5. AERIUS (CANADA) [Concomitant]
     Dosage: 1 TO 2 TIMES DAILY
     Route: 065
     Dates: start: 201606
  6. XOLAIR [Suspect]
     Active Substance: OMALIZUMAB
     Route: 058
     Dates: start: 20160623
  7. XOLAIR [Suspect]
     Active Substance: OMALIZUMAB
     Route: 058
     Dates: start: 20160609

REACTIONS (22)
  - Ascites [Unknown]
  - Ovarian cyst [Unknown]
  - Intestinal obstruction [Unknown]
  - Feeling abnormal [Unknown]
  - Respiratory tract congestion [Unknown]
  - Dyspepsia [Unknown]
  - Dizziness [Unknown]
  - Myalgia [Unknown]
  - Injection site pain [Unknown]
  - Gastroduodenal ulcer [Unknown]
  - Malaise [Unknown]
  - Eye pruritus [Unknown]
  - Hypersensitivity [Unknown]
  - Gastrointestinal inflammation [Unknown]
  - Swelling [Unknown]
  - Burning sensation [Unknown]
  - Hypovolaemia [Unknown]
  - Productive cough [Unknown]
  - Abdominal pain [Not Recovered/Not Resolved]
  - Fatigue [Unknown]
  - Abdominal distension [Unknown]
  - Nasopharyngitis [Unknown]

NARRATIVE: CASE EVENT DATE: 20160510
